FAERS Safety Report 17671380 (Version 2)
Quarter: 2024Q3

REPORT INFORMATION
  Report Type: Spontaneous
  Country: HR (occurrence: HR)
  Receive Date: 20200415
  Receipt Date: 20240924
  Transmission Date: 20241016
  Serious: Yes (Other)
  Sender: MYLAN
  Company Number: HR-EMA-DD-20190828-BANAVALLI_M-140400

PATIENT
  Age: 42 Year
  Sex: Female

DRUGS (5)
  1. SERTRALINE [Suspect]
     Active Substance: SERTRALINE HYDROCHLORIDE
     Indication: Depression
     Dosage: 75 MILLIGRAM, QD
     Route: 065
  2. SERTRALINE [Suspect]
     Active Substance: SERTRALINE HYDROCHLORIDE
     Dosage: 50 MG, DAILY, (NEXT THREE DAYS)
     Route: 065
  3. SERTRALINE [Suspect]
     Active Substance: SERTRALINE HYDROCHLORIDE
     Dosage: 25 MG, DAILY, (FOR THE FIRST TWO DAYS)
     Route: 065
  4. PAROXETINE [Suspect]
     Active Substance: PAROXETINE
     Indication: Depression
     Dosage: UNK
     Route: 065
  5. ALPRAZOLAM [Concomitant]
     Active Substance: ALPRAZOLAM
     Indication: Depression
     Dosage: 0.25 MG AS NEEDED
     Route: 065

REACTIONS (8)
  - Temporomandibular pain and dysfunction syndrome [Recovered/Resolved]
  - Drug intolerance [Unknown]
  - Trismus [Unknown]
  - Anorgasmia [Unknown]
  - Yawning [Recovered/Resolved]
  - Blood prolactin increased [Unknown]
  - Libido decreased [Unknown]
  - Hyperprolactinaemia [Unknown]
